FAERS Safety Report 5469400-5 (Version None)
Quarter: 2007Q3

REPORT INFORMATION
  Report Type: 
  Country: None (occurrence: None)
  Receive Date: 20070927
  Receipt Date: 20070913
  Transmission Date: 20080115
  Serious: Yes (Death)
  Sender: FDA-Public Use
  Company Number: JP-GENENTECH-247344

PATIENT
  Age: 44 Year
  Sex: Female

DRUGS (3)
  1. HERCEPTIN [Suspect]
     Indication: BREAST CANCER
     Dosage: 2 MG/KG, 1/WEEK
     Route: 041
     Dates: start: 20040527
  2. PACLITAXEL [Suspect]
     Indication: BREAST CANCER
     Dosage: 60 MG, 1/WEEK
     Route: 042
     Dates: start: 20040513
  3. TAMOXIFEN CITRATE [Suspect]
     Indication: BREAST CANCER
     Dosage: 20 MG, QD
     Route: 048
     Dates: start: 20040527

REACTIONS (2)
  - HEPATIC ATROPHY [None]
  - HEPATIC FAILURE [None]
